FAERS Safety Report 13702978 (Version 1)
Quarter: 2017Q2

REPORT INFORMATION
  Report Type: Spontaneous
  Country: NO (occurrence: NO)
  Receive Date: 20170629
  Receipt Date: 20170629
  Transmission Date: 20170830
  Serious: Yes (Death)
  Sender: FDA-Public Use
  Company Number: NO-TEVA-779945ACC

PATIENT
  Age: 73 Year
  Sex: Female

DRUGS (3)
  1. PARACETAMOL [Suspect]
     Active Substance: ACETAMINOPHEN
     Indication: PAIN
     Dosage: CUMULATIV DOSE: 8-12 GRAMS)
     Route: 048
     Dates: start: 20170523, end: 20170525
  2. PINEX FORTE [Suspect]
     Active Substance: ACETAMINOPHEN\CODEINE PHOSPHATE
     Indication: PAIN
     Dosage: 1-2 TABLETS UP TO 4 TIMES A DAY
     Route: 048
     Dates: start: 20170526, end: 20170527
  3. OXYCONTIN [Concomitant]
     Active Substance: OXYCODONE HYDROCHLORIDE
     Indication: PAIN
     Route: 048
     Dates: start: 20170523, end: 20170526

REACTIONS (3)
  - Acute kidney injury [Fatal]
  - Acute hepatic failure [Fatal]
  - Coma hepatic [Fatal]

NARRATIVE: CASE EVENT DATE: 201705
